FAERS Safety Report 15003347 (Version 1)
Quarter: 2018Q2

REPORT INFORMATION
  Report Type: Spontaneous
  Country: DE (occurrence: DE)
  Receive Date: 20180613
  Receipt Date: 20180613
  Transmission Date: 20180711
  Serious: Yes (Death, Hospitalization)
  Sender: FDA-Public Use
  Company Number: DE-SUN PHARMACEUTICAL INDUSTRIES LTD-2018RR-175519

PATIENT
  Age: 86 Year
  Sex: Female
  Weight: 67 kg

DRUGS (15)
  1. CALCIUM FOLINAT [Suspect]
     Active Substance: LEUCOVORIN CALCIUM
     Indication: PRODUCT USED FOR UNKNOWN INDICATION
     Route: 042
     Dates: start: 20140213, end: 20140331
  2. TARGIN [Concomitant]
     Active Substance: NALOXONE HYDROCHLORIDE\OXYCODONE HYDROCHLORIDE
     Indication: TUMOUR PAIN
     Dosage: 5/2.5 MG, 1-0-1
     Route: 048
     Dates: start: 20140212, end: 20140428
  3. PALLADON [Concomitant]
     Active Substance: HYDROMORPHONE
     Indication: TUMOUR PAIN
     Dosage: 1-0-1
     Route: 048
     Dates: start: 20140110, end: 20140428
  4. NOVALGIN (METAMIZOLE SODIUM) [Concomitant]
     Active Substance: METAMIZOLE SODIUM
     Indication: TUMOUR PAIN
     Dosage: 1-1-1
     Route: 048
     Dates: start: 20140110, end: 20140428
  5. OXALIPLATIN. [Suspect]
     Active Substance: OXALIPLATIN
     Dosage: DAILY DOSE: 130 MG MILLGRAM(S) EVERY 15 DAYS
     Route: 042
     Dates: start: 20140213, end: 20140331
  6. CALCIUM FOLINAT [Suspect]
     Active Substance: LEUCOVORIN CALCIUM
     Dosage: 700 MG, UNK
     Route: 042
     Dates: start: 20130902, end: 20140121
  7. 5-FLUOROURACIL [Suspect]
     Active Substance: FLUOROURACIL
     Dosage: OVER 48 HOURS
     Route: 041
     Dates: start: 20130902, end: 20140122
  8. 5-FLUOROURACIL [Suspect]
     Active Substance: FLUOROURACIL
     Dosage: DAILY DOSE: 600 MG MILLGRAM(S) EVERY 15 DAYS
     Route: 040
     Dates: start: 20140213, end: 20140331
  9. 5-FLUOROURACIL [Suspect]
     Active Substance: FLUOROURACIL
     Indication: COLORECTAL CANCER
     Dosage: DAILY DOSE: 3500 MG MILLGRAM(S) EVERY 15 DAYS
     Route: 041
     Dates: start: 20140213, end: 20140401
  10. 5-FLUOROURACIL [Suspect]
     Active Substance: FLUOROURACIL
     Dosage: DAILY DOSE: 700 MG MILLGRAM(S) EVERY 15 DAYS
     Route: 040
     Dates: start: 20130902, end: 20140121
  11. AVASTIN [Suspect]
     Active Substance: BEVACIZUMAB
     Indication: COLORECTAL CANCER
     Dosage: 350 MG, UNK
     Route: 042
     Dates: start: 20130902, end: 20140121
  12. AVASTIN [Suspect]
     Active Substance: BEVACIZUMAB
     Dosage: 300 MG, UNK
     Route: 042
     Dates: start: 20140331, end: 20140331
  13. LYRICA [Concomitant]
     Active Substance: PREGABALIN
     Indication: POLYNEUROPATHY
     Dosage: 1-0-1
     Route: 048
     Dates: start: 20140110, end: 20140428
  14. PANTOZOL [Concomitant]
     Active Substance: PANTOPRAZOLE SODIUM
     Indication: PROPHYLAXIS
     Dosage: 1-0-1
     Route: 048
     Dates: start: 20130726, end: 20140428
  15. OXALIPLATIN. [Suspect]
     Active Substance: OXALIPLATIN
     Indication: COLORECTAL CANCER
     Dosage: DAILY DOSE: 150 MG MILLGRAM(S) EVERY 15 DAYS
     Route: 042
     Dates: start: 20130902, end: 20140121

REACTIONS (9)
  - Malignant neoplasm progression [Unknown]
  - Duodenal ulcer [Recovered/Resolved]
  - Nausea [Recovered/Resolved]
  - Dehydration [Recovered/Resolved]
  - Gastrooesophageal reflux disease [Recovered/Resolved]
  - Hemiparesis [Unknown]
  - Gastric ulcer [Recovered/Resolved]
  - Cerebrovascular accident [Fatal]
  - Vomiting [Recovered/Resolved]

NARRATIVE: CASE EVENT DATE: 20140131
